FAERS Safety Report 13896378 (Version 2)
Quarter: 2018Q1

REPORT INFORMATION
  Report Type: Spontaneous
  Country: CA (occurrence: CA)
  Receive Date: 20170823
  Receipt Date: 20180319
  Transmission Date: 20180508
  Serious: Yes (Other)
  Sender: FDA-Public Use
  Company Number: CA-FERRINGPH-2017FE03936

PATIENT

DRUGS (37)
  1. CABAZITAXEL [Suspect]
     Active Substance: CABAZITAXEL
     Dosage: 40.25 MG, EVERY 3 WEEKS
     Route: 042
     Dates: start: 20161116, end: 20161116
  2. CABAZITAXEL [Suspect]
     Active Substance: CABAZITAXEL
     Dosage: 40.25 MG, EVERY 3 WEEKS
     Route: 042
     Dates: start: 20161005, end: 20161005
  3. CABAZITAXEL [Suspect]
     Active Substance: CABAZITAXEL
     Dosage: 40.25 MG, EVERY 3 WEEKS
     Route: 042
     Dates: start: 20160824, end: 20160824
  4. TIAZAC XC [Concomitant]
     Active Substance: DILTIAZEM HYDROCHLORIDE
     Indication: HYPERTENSION
     Dosage: 360 MG, 1 TIME DAILY
     Route: 048
     Dates: start: 20160415
  5. VORTIOXETINE HYDROBROMIDE [Concomitant]
     Active Substance: VORTIOXETINE HYDROBROMIDE
     Indication: DEPRESSION
     Dosage: 10 MG, 1 TIME DAILY
     Route: 048
     Dates: start: 20160426
  6. CABAZITAXEL [Suspect]
     Active Substance: CABAZITAXEL
     Dosage: 40.25 MG, EVERY 3 WEEKS
     Route: 042
     Dates: start: 20170118, end: 20170118
  7. CABAZITAXEL [Suspect]
     Active Substance: CABAZITAXEL
     Dosage: 40.25 MG, EVERY 3 WEEKS
     Route: 042
     Dates: start: 20161026, end: 20161026
  8. DOCUSATE [Concomitant]
     Active Substance: DOCUSATE
     Indication: CONSTIPATION
     Dosage: 100 MG, 2 TIMES DAILY, AS NEEDED
     Route: 048
     Dates: start: 20160331
  9. FIRMAGON [Suspect]
     Active Substance: DEGARELIX ACETATE
     Dosage: 80 MG, MONTHLY
     Route: 058
     Dates: start: 20160503
  10. CABAZITAXEL [Suspect]
     Active Substance: CABAZITAXEL
     Dosage: 41.4 MG, EVERY 3 WEEKS
     Route: 042
     Dates: start: 20170412, end: 20170412
  11. PROLIA [Concomitant]
     Active Substance: DENOSUMAB
     Indication: BONE DISORDER
     Dosage: UNK
     Route: 058
     Dates: start: 20160802
  12. CABAZITAXEL [Suspect]
     Active Substance: CABAZITAXEL
     Indication: PROSTATE CANCER
     Dosage: 40.25 MG, EVERY 3 WEEKS
     Route: 042
     Dates: start: 20170621, end: 20170621
  13. CABAZITAXEL [Suspect]
     Active Substance: CABAZITAXEL
     Dosage: 40.25 MG, EVERY 3 WEEKS
     Route: 042
     Dates: start: 20170322, end: 20170322
  14. CABAZITAXEL [Suspect]
     Active Substance: CABAZITAXEL
     Dosage: 40.25 MG, EVERY 3 WEEKS
     Route: 042
     Dates: start: 20160803, end: 20160803
  15. PREDNISONE. [Concomitant]
     Active Substance: PREDNISONE
     Indication: ROUTINE HEALTH MAINTENANCE
     Dosage: 5 MG, 2 TIMES DAILY
     Route: 048
     Dates: start: 20160518
  16. FAMOTIDINE. [Concomitant]
     Active Substance: FAMOTIDINE
     Dosage: 20 MG, UNK
     Route: 042
     Dates: start: 20161026, end: 20161026
  17. DECADRON [Concomitant]
     Active Substance: DEXAMETHASONE
     Dosage: 10 MG, UNK
     Route: 042
     Dates: start: 20161026, end: 20161026
  18. CABAZITAXEL [Suspect]
     Active Substance: CABAZITAXEL
     Dosage: 40.25 MG, EVERY 3 WEEKS
     Route: 042
     Dates: start: 20160914, end: 20160914
  19. CABAZITAXEL [Suspect]
     Active Substance: CABAZITAXEL
     Dosage: 40.25 MG, EVERY 3 WEEKS
     Route: 042
     Dates: start: 20160706, end: 20160706
  20. CABAZITAXEL [Suspect]
     Active Substance: CABAZITAXEL
     Dosage: 49.45 MG, EVERY 3 WEEKS
     Route: 042
     Dates: start: 20160519, end: 20160519
  21. COVERSYL                           /00790702/ [Concomitant]
     Active Substance: PERINDOPRIL
     Indication: HYPERTENSION
     Dosage: 4 MG, 1 TIME DAILY
     Route: 048
     Dates: start: 20160426
  22. CABAZITAXEL [Suspect]
     Active Substance: CABAZITAXEL
     Dosage: 40.25 MG, EVERY 3 WEEKS
     Route: 042
     Dates: start: 20170303, end: 20170303
  23. CABAZITAXEL [Suspect]
     Active Substance: CABAZITAXEL
     Dosage: 40.25 MG, EVERY 3 WEEKS
     Route: 042
     Dates: start: 20160615, end: 20160615
  24. HYDROMORPHONE [Concomitant]
     Active Substance: HYDROMORPHONE
     Indication: PAIN
     Dosage: 2 MG, Q 4H
     Route: 048
     Dates: start: 20160331
  25. FOSFOMYCIN TROMETAMOL [Concomitant]
     Indication: ANTIBIOTIC THERAPY
     Dosage: 3 G, 1 TIME DAILY
     Route: 048
     Dates: start: 20160418
  26. PROCHLORAZINE [Concomitant]
     Indication: NAUSEA
     Dosage: 10 MG, 30MIN BEFORE JEVTANA INFUSION
     Route: 048
     Dates: start: 20160518
  27. STEMETIL                           /00013301/ [Concomitant]
     Active Substance: PROCHLORPERAZINE
     Dosage: 10 MG, UNK
     Route: 048
     Dates: start: 20161026, end: 20161026
  28. CABAZITAXEL [Suspect]
     Active Substance: CABAZITAXEL
     Dosage: 41.4 MG, EVERY 3 WEEKS
     Route: 042
     Dates: start: 20170510, end: 20170510
  29. CABAZITAXEL [Suspect]
     Active Substance: CABAZITAXEL
     Dosage: 40.25 MG, EVERY 3 WEEKS
     Route: 042
     Dates: start: 20161207, end: 20161207
  30. VITAMIN C [Concomitant]
     Active Substance: ASCORBIC ACID
     Indication: ROUTINE HEALTH MAINTENANCE
     Dosage: 1500 MG, UNK
     Route: 048
     Dates: start: 20160415
  31. BENADRYL [Concomitant]
     Active Substance: DIPHENHYDRAMINE HYDROCHLORIDE
     Indication: PREMEDICATION
     Dosage: 25 MG, UNK
     Route: 042
     Dates: start: 20161026, end: 20161026
  32. FIRMAGON [Suspect]
     Active Substance: DEGARELIX ACETATE
     Indication: PROSTATE CANCER
     Dosage: 80 MG, MONTHLY
     Route: 058
     Dates: start: 20160802, end: 20160802
  33. CABAZITAXEL [Suspect]
     Active Substance: CABAZITAXEL
     Dosage: 41.4 MG, EVERY 3 WEEKS
     Route: 042
     Dates: start: 20170531, end: 20170531
  34. CABAZITAXEL [Suspect]
     Active Substance: CABAZITAXEL
     Dosage: 40.25 MG, EVERY 3 WEEKS
     Route: 042
     Dates: start: 20170208, end: 20170208
  35. CALCIUM/VITAMIN D                  /01204201/ [Concomitant]
     Active Substance: CALCIUM CARBONATE\ERGOCALCIFEROL
     Indication: ROUTINE HEALTH MAINTENANCE
     Dosage: 500 MG AND 400 IU, 2 TIMES DAILY
     Route: 048
     Dates: start: 20160426
  36. ANODAN-HC [Concomitant]
     Indication: HAEMORRHOIDS
     Dosage: 0.5 %, 2 TIMES DAILY
     Dates: start: 20160506
  37. METOCLOPRAMIDE. [Concomitant]
     Active Substance: METOCLOPRAMIDE
     Indication: PREMEDICATION
     Dosage: 10 MG, UNK
     Route: 048

REACTIONS (10)
  - Neutropenia [Recovered/Resolved]
  - Fatigue [Not Recovered/Not Resolved]
  - Nausea [Unknown]
  - Insomnia [Recovered/Resolved]
  - Hypoaesthesia [Not Recovered/Not Resolved]
  - Back pain [Unknown]
  - Blood pressure systolic increased [Recovered/Resolved]
  - Paraesthesia [Recovered/Resolved]
  - Asthenia [Recovered/Resolved]
  - Diarrhoea [Recovered/Resolved]

NARRATIVE: CASE EVENT DATE: 2016
